FAERS Safety Report 7216361-4 (Version None)
Quarter: 2011Q1

REPORT INFORMATION
  Report Type: 
  Country: None (occurrence: None)
  Receive Date: 20110105
  Receipt Date: 20110105
  Transmission Date: 20110831
  Serious: Yes (Other)
  Sender: FDA-Public Use
  Company Number: None

PATIENT
  Age: 80 Year
  Sex: Male
  Weight: 69.4003 kg

DRUGS (2)
  1. PAROXITINE - GENERIC 20 MG ZYDUS [Suspect]
     Indication: DEPRESSION
     Dosage: MONTH
  2. PAXIL [Suspect]
     Dosage: 20 MG DAILY ORAL 16-17 YEARS
     Route: 048

REACTIONS (3)
  - DYSURIA [None]
  - PRODUCT COLOUR ISSUE [None]
  - PRODUCT SUBSTITUTION ISSUE [None]
